FAERS Safety Report 10894999 (Version 3)
Quarter: 2015Q1

REPORT INFORMATION
  Report Type: Report from Study
  Country: UG (occurrence: UG)
  Receive Date: 20150306
  Receipt Date: 20150323
  Transmission Date: 20150721
  Serious: Yes (Other)
  Sender: FDA-Public Use
  Company Number: UG-GILEAD-2015-0140055

PATIENT
  Age: 38 Year
  Sex: Female
  Weight: 68.7 kg

DRUGS (17)
  1. CO AMOXICLAV                       /02043401/ [Concomitant]
     Dosage: 625 MG, BID
     Route: 048
     Dates: start: 20150105
  2. CETRIZINE [Concomitant]
     Active Substance: CETIRIZINE HYDROCHLORIDE
     Indication: RESPIRATORY TRACT INFECTION
     Dosage: 1 DF, QD
     Route: 048
     Dates: start: 20130927, end: 20131002
  3. CETRIZINE [Concomitant]
     Active Substance: CETIRIZINE HYDROCHLORIDE
     Dosage: 10 MG, QD
     Route: 048
     Dates: start: 20150105
  4. PARACETAMOL [Concomitant]
     Active Substance: ACETAMINOPHEN
     Indication: RESPIRATORY TRACT INFECTION
     Dosage: 1 G, TID
     Route: 048
     Dates: start: 20130927, end: 20130930
  5. EFAVIRENZ/EMTRICITABINE/TENOFOVIR DISOPROXIL FUMARATE [Suspect]
     Active Substance: EFAVIRENZ\EMTRICITABINE\TENOFOVIR DISOPROXIL FUMARATE
     Indication: HIV INFECTION
     Dosage: 300 MG, QD
     Route: 048
     Dates: start: 20131021
  6. AMPICLOX                           /00190301/ [Concomitant]
     Indication: RESPIRATORY TRACT INFECTION
     Dosage: 500 MG, QID
     Route: 048
     Dates: start: 20130927, end: 20131002
  7. CO AMOXICLAV                       /02043401/ [Concomitant]
     Indication: BRONCHOSPASM
     Dosage: 625 MG, BID
     Route: 048
     Dates: start: 20150105
  8. CO AMOXICLAV                       /02043401/ [Concomitant]
     Indication: RESPIRATORY TRACT INFECTION
     Dosage: 625 MG, BID
     Route: 048
     Dates: start: 20140626, end: 20140701
  9. IBUPROFEN. [Concomitant]
     Active Substance: IBUPROFEN
     Indication: RESPIRATORY TRACT INFECTION
     Dosage: 400 MG, TID
     Route: 048
     Dates: start: 20140626, end: 20140629
  10. SALBUTAMOL [Concomitant]
     Active Substance: ALBUTEROL
     Indication: BRONCHOSPASM
     Dosage: 4 MG, TID
     Route: 048
     Dates: start: 20150105
  11. EFAVIRENZ [Suspect]
     Active Substance: EFAVIRENZ
     Indication: HIV INFECTION
     Dosage: 600 MG, QD
     Route: 065
     Dates: start: 20131021
  12. CETRIZINE [Concomitant]
     Active Substance: CETIRIZINE HYDROCHLORIDE
     Dosage: 1 DF, QD
     Route: 048
     Dates: start: 20130927, end: 20131002
  13. PREDNISOLONE. [Concomitant]
     Active Substance: PREDNISOLONE
     Indication: BRONCHOSPASM
     Dosage: 20 MG, QD
     Route: 048
     Dates: start: 20141210, end: 20141212
  14. AMOXYCILLIN [Concomitant]
     Active Substance: AMOXICILLIN
     Indication: BRONCHOSPASM
     Dosage: 500 MG, TID
     Route: 048
     Dates: start: 20141210, end: 20141215
  15. CETRIZINE [Concomitant]
     Active Substance: CETIRIZINE HYDROCHLORIDE
     Indication: BRONCHOSPASM
     Dosage: 10 MG, QD
     Route: 048
     Dates: start: 20150105
  16. CO AMOXICLAV                       /02043401/ [Concomitant]
     Dosage: 625 MG, BID
     Route: 048
     Dates: start: 20140626, end: 20140701
  17. SALBUTAMOL [Concomitant]
     Active Substance: ALBUTEROL
     Dosage: 4 MG, TID
     Route: 048
     Dates: start: 20141210, end: 20141215

REACTIONS (1)
  - Uterine haemorrhage [Recovered/Resolved with Sequelae]

NARRATIVE: CASE EVENT DATE: 201501
